FAERS Safety Report 4662430-2 (Version None)
Quarter: 2005Q2

REPORT INFORMATION
  Report Type: 
  Country: None (occurrence: None)
  Receive Date: 20050512
  Receipt Date: 20050429
  Transmission Date: 20051028
  Serious: Yes (Hospitalization)
  Sender: FDA-Public Use
  Company Number: 31038

PATIENT

DRUGS (1)
  1. CIPRODEX [Suspect]

REACTIONS (1)
  - CONVULSION [None]
